FAERS Safety Report 10631515 (Version 1)
Quarter: 2014Q4

REPORT INFORMATION
  Report Type: Spontaneous
  Country: US (occurrence: US)
  Receive Date: 20141205
  Receipt Date: 20141205
  Transmission Date: 20150529
  Serious: No
  Sender: FDA-Public Use
  Company Number: US-BRISTOL-MYERS SQUIBB COMPANY-20976767

PATIENT
  Sex: Female

DRUGS (6)
  1. ACTOS [Concomitant]
     Active Substance: PIOGLITAZONE HYDROCHLORIDE
  2. APIDRA [Concomitant]
     Active Substance: INSULIN GLULISINE
  3. BYETTA [Suspect]
     Active Substance: EXENATIDE
  4. HUMALOG [Concomitant]
     Active Substance: INSULIN LISPRO
  5. NOVOLIN N [Concomitant]
     Active Substance: INSULIN HUMAN
  6. LANTUS [Concomitant]
     Active Substance: INSULIN GLARGINE

REACTIONS (3)
  - Weight increased [Unknown]
  - Peripheral swelling [Unknown]
  - Blood glucose increased [Unknown]
